FAERS Safety Report 14931338 (Version 2)
Quarter: 2018Q2

REPORT INFORMATION
  Report Type: Spontaneous
  Country: US (occurrence: US)
  Receive Date: 20180524
  Receipt Date: 20180530
  Transmission Date: 20180711
  Serious: No
  Sender: FDA-Public Use
  Company Number: US-UNITED THERAPEUTICS-UNT-2018-006136

PATIENT
  Age: 65 Year
  Sex: Female
  Weight: 114.29 kg

DRUGS (4)
  1. EPOPROSTENOL TEVA [Concomitant]
     Indication: PRODUCT USED FOR UNKNOWN INDICATION
     Route: 065
  2. REMODULIN [Suspect]
     Active Substance: TREPROSTINIL
     Dosage: 0.03 ?G/KG, CONTINUING
     Route: 041
  3. REMODULIN [Suspect]
     Active Substance: TREPROSTINIL
     Dosage: 0.022 ?G/KG, CONTINUING
     Route: 041
  4. REMODULIN [Suspect]
     Active Substance: TREPROSTINIL
     Indication: PULMONARY ARTERIAL HYPERTENSION
     Dosage: 0.020 ?G/KG, CONTINUING
     Route: 041
     Dates: start: 20180427

REACTIONS (16)
  - Rales [Unknown]
  - Lip dry [Unknown]
  - Pain in extremity [Unknown]
  - Anxiety [Unknown]
  - Contusion [Unknown]
  - Fatigue [Unknown]
  - Headache [Unknown]
  - Dizziness [Unknown]
  - Oedema peripheral [Unknown]
  - Asthenia [Unknown]
  - Pain [Unknown]
  - Flushing [Unknown]
  - Hypotension [Unknown]
  - Vein disorder [Unknown]
  - Sensitivity of teeth [Unknown]
  - Insomnia [Unknown]

NARRATIVE: CASE EVENT DATE: 201804
